FAERS Safety Report 18586573 (Version 1)
Quarter: 2020Q4

REPORT INFORMATION
  Report Type: Report from Study
  Country: CN (occurrence: CN)
  Receive Date: 20201207
  Receipt Date: 20201207
  Transmission Date: 20210114
  Serious: Yes (Hospitalization, Other)
  Sender: FDA-Public Use
  Company Number: CN-BRISTOL-MYERS SQUIBB COMPANY-BMS-2020-087019

PATIENT
  Age: 82 Year
  Sex: Male

DRUGS (1)
  1. NIVOLUMAB [Suspect]
     Active Substance: NIVOLUMAB
     Indication: LUNG NEOPLASM MALIGNANT
     Dosage: 140 MILLIGRAM, Q3WK
     Route: 042
     Dates: start: 20200730

REACTIONS (5)
  - Off label use [Unknown]
  - Metastases to bone [Unknown]
  - Intervertebral disc protrusion [Unknown]
  - Cough [Unknown]
  - Movement disorder [Unknown]

NARRATIVE: CASE EVENT DATE: 20200730
